FAERS Safety Report 4597226-3 (Version None)
Quarter: 2005Q1

REPORT INFORMATION
  Report Type: 
  Country: None (occurrence: None)
  Receive Date: 20050301
  Receipt Date: 20050216
  Transmission Date: 20050727
  Serious: Yes (Hospitalization, Disabling, Other)
  Sender: FDA-Public Use
  Company Number: 2005033530

PATIENT
  Age: 58 Year

DRUGS (1)
  1. DOXAZOSIN MESYLATE [Suspect]
     Indication: HYPERTENSION
     Dosage: UNK (8 MG, UNKNOWN); ORAL
     Route: 048
     Dates: start: 20050128, end: 20050201

REACTIONS (3)
  - DIZZINESS [None]
  - MENTAL IMPAIRMENT [None]
  - SPEECH DISORDER [None]
